FAERS Safety Report 21330591 (Version 1)
Quarter: 2022Q3

REPORT INFORMATION
  Report Type: Spontaneous
  Country: US (occurrence: None)
  Receive Date: 20220913
  Receipt Date: 20220913
  Transmission Date: 20221027
  Serious: Yes (Hospitalization)
  Sender: FDA-Public Use
  Company Number: None

PATIENT
  Age: 58 Year
  Sex: Male
  Weight: 85.73 kg

DRUGS (2)
  1. FENTANYL CITRATE [Suspect]
     Active Substance: FENTANYL CITRATE
     Indication: Endoscopy
     Dosage: OTHER STRENGTH : 50MCG/ML;?
     Route: 042
     Dates: start: 20220823, end: 20220823
  2. MIDAZOLAM HYDROCHLORIDE [Suspect]
     Active Substance: MIDAZOLAM HYDROCHLORIDE
     Indication: Endoscopy
     Dates: start: 20220823, end: 20220823

REACTIONS (5)
  - Tachycardia [None]
  - Hypertension [None]
  - Sedation complication [None]
  - Respiratory depression [None]
  - Mental status changes [None]

NARRATIVE: CASE EVENT DATE: 20220823
